FAERS Safety Report 9683627 (Version 1)
Quarter: 2013Q4

REPORT INFORMATION
  Report Type: Spontaneous
  Country: NL (occurrence: NL)
  Receive Date: 20131112
  Receipt Date: 20131112
  Transmission Date: 20140711
  Serious: Yes (Hospitalization)
  Sender: FDA-Public Use
  Company Number: NL-PFIZER INC-2013319920

PATIENT
  Age: 96 Year
  Sex: Female
  Weight: 60 kg

DRUGS (4)
  1. DOXYCYCLINE HYCLATE [Suspect]
     Indication: PNEUMONIA
     Dosage: 100 MG, 1X/DAY
     Dates: start: 20131013, end: 20131018
  2. PERSANTIN - SLOW RELEASE [Concomitant]
     Dosage: 200 MG, 1X/DAY
     Dates: start: 20110208
  3. ASCAL CARDIO [Concomitant]
     Dosage: 10 MG, 1X/DAY
     Dates: start: 20110102
  4. PANTOPRAZOL [Concomitant]
     Dosage: 20 MG, 1X/DAY
     Dates: start: 20110102

REACTIONS (1)
  - Pancreatitis [Recovering/Resolving]
